FAERS Safety Report 8919840 (Version 2)
Quarter: 2013Q1

REPORT INFORMATION
  Report Type: Report from Study
  Country: US (occurrence: US)
  Receive Date: 20121121
  Receipt Date: 20130107
  Transmission Date: 20140127
  Serious: Yes (Hospitalization, Other)
  Sender: FDA-Public Use
  Company Number: US-JNJFOC-20121106441

PATIENT
  Age: 22 None
  Sex: Female
  Weight: 47.17 kg

DRUGS (9)
  1. REMICADE [Suspect]
     Indication: CROHN^S DISEASE
     Route: 042
     Dates: start: 20120821
  2. REMICADE [Suspect]
     Indication: CROHN^S DISEASE
     Route: 042
     Dates: start: 20120904
  3. REMICADE [Suspect]
     Indication: CROHN^S DISEASE
     Route: 042
     Dates: start: 20121005
  4. REMICADE [Suspect]
     Indication: CROHN^S DISEASE
     Route: 042
     Dates: start: 20121205
  5. VITAMIN B12 [Concomitant]
     Route: 065
  6. VITRON C [Concomitant]
     Route: 065
  7. FLORASTOR [Concomitant]
     Indication: PROBIOTIC THERAPY
     Route: 065
  8. MULTIVITAMINS [Concomitant]
     Route: 065
  9. ALL OTHER THERAPEUTICS [Concomitant]
     Route: 065

REACTIONS (12)
  - Adverse event [Recovered/Resolved]
  - Intestinal resection [Recovered/Resolved]
  - Hospitalisation [Recovered/Resolved]
  - Eating disorder [Recovered/Resolved]
  - Abnormal loss of weight [Recovered/Resolved]
  - Infusion related reaction [Recovered/Resolved]
  - Diarrhoea [Recovered/Resolved]
  - Palpitations [Recovered/Resolved]
  - Flushing [Recovered/Resolved]
  - Cough [Recovered/Resolved]
  - Vomiting [Recovered/Resolved]
  - Chest discomfort [Recovered/Resolved]
